FAERS Safety Report 25392657 (Version 1)
Quarter: 2025Q2

REPORT INFORMATION
  Report Type: Spontaneous
  Country: US (occurrence: US)
  Receive Date: 20250603
  Receipt Date: 20250603
  Transmission Date: 20250716
  Serious: Yes (Hospitalization, Other)
  Sender: ELI LILLY AND COMPANY
  Company Number: US-ELI_LILLY_AND_COMPANY-US202505020126

PATIENT
  Age: 68 Year
  Sex: Male

DRUGS (21)
  1. TALTZ [Suspect]
     Active Substance: IXEKIZUMAB
     Indication: Product used for unknown indication
     Route: 065
     Dates: start: 20240711
  2. ENBREL [Suspect]
     Active Substance: ETANERCEPT
     Indication: Rheumatoid arthritis
     Dosage: 50 MG, WEEKLY (1/W)
     Route: 058
     Dates: start: 202112, end: 2024
  3. ENBREL [Suspect]
     Active Substance: ETANERCEPT
     Dosage: 50 MG, WEEKLY (1/W)
     Route: 058
  4. PREDNISONE [Suspect]
     Active Substance: PREDNISONE
     Indication: Product used for unknown indication
     Dosage: 2.5 MG, BID
     Route: 065
  5. PREDNISONE [Suspect]
     Active Substance: PREDNISONE
     Dosage: 10 MG, DAILY
     Route: 065
  6. HYDROXYCHLOROQUINE SULFATE [Concomitant]
     Active Substance: HYDROXYCHLOROQUINE SULFATE
     Indication: Product used for unknown indication
     Route: 065
     Dates: start: 20250128
  7. ASPIRIN [Concomitant]
     Active Substance: ASPIRIN
     Indication: Product used for unknown indication
     Route: 065
     Dates: start: 20230116
  8. MELOXICAM [Concomitant]
     Active Substance: MELOXICAM
     Indication: Product used for unknown indication
  9. TYLENOL [Concomitant]
     Active Substance: ACETAMINOPHEN
     Indication: Product used for unknown indication
  10. SULFASALAZINE [Concomitant]
     Active Substance: SULFASALAZINE
     Indication: Product used for unknown indication
  11. VOLTAREN [Concomitant]
     Active Substance: DICLOFENAC SODIUM
     Indication: Product used for unknown indication
  12. GABAPENTIN [Concomitant]
     Active Substance: GABAPENTIN
     Indication: Product used for unknown indication
  13. LYRICA [Concomitant]
     Active Substance: PREGABALIN
     Indication: Product used for unknown indication
  14. RINVOQ [Concomitant]
     Active Substance: UPADACITINIB
     Indication: Product used for unknown indication
  15. SHINGRIX [Concomitant]
     Active Substance: RECOMBINANT VARICELLA ZOSTER VIRUS (VZV) GLYCOPROTEIN E
     Indication: Product used for unknown indication
  16. CLOPIDOGREL BISULFATE [Concomitant]
     Active Substance: CLOPIDOGREL BISULFATE
     Indication: Product used for unknown indication
  17. METHYLPREDNISOLONE [Concomitant]
     Active Substance: METHYLPREDNISOLONE
     Indication: Tendonitis
  18. AMITRIPTYLINE HYDROCHLORIDE [Concomitant]
     Active Substance: AMITRIPTYLINE HYDROCHLORIDE
     Indication: Pericarditis constrictive
     Route: 065
     Dates: end: 2022
  19. AMITRIPTYLINE HYDROCHLORIDE [Concomitant]
     Active Substance: AMITRIPTYLINE HYDROCHLORIDE
     Indication: Pain in extremity
     Route: 065
     Dates: start: 20240212
  20. BRILINTA [Concomitant]
     Active Substance: TICAGRELOR
     Indication: Pericarditis constrictive
  21. METOPROLOL SUCCINATE [Concomitant]
     Active Substance: METOPROLOL SUCCINATE
     Indication: Pericarditis constrictive

REACTIONS (4)
  - Chest pain [Unknown]
  - Disorientation [Unknown]
  - Herpes zoster [Unknown]
  - Neuralgia [Unknown]

NARRATIVE: CASE EVENT DATE: 20240101
